FAERS Safety Report 16866694 (Version 1)
Quarter: 2019Q3

REPORT INFORMATION
  Report Type: Report from Study
  Country: DE (occurrence: DE)
  Receive Date: 20190930
  Receipt Date: 20190930
  Transmission Date: 20191005
  Serious: Yes (Other)
  Sender: FDA-Public Use
  Company Number: PHHY2019DE225140

PATIENT
  Age: 5 Year
  Sex: Male

DRUGS (2)
  1. OMNITROPE [Suspect]
     Active Substance: SOMATROPIN
     Dosage: 1 MG, QD
     Route: 058
     Dates: start: 20180115
  2. OMNITROPE [Suspect]
     Active Substance: SOMATROPIN
     Indication: CHRONIC KIDNEY DISEASE
     Dosage: 1 MG, QD
     Route: 058
     Dates: start: 20170227, end: 20171214

REACTIONS (3)
  - Idiopathic intracranial hypertension [Recovered/Resolved]
  - Cerebral congestion [Recovered/Resolved]
  - Conjunctival disorder [Recovered/Resolved]

NARRATIVE: CASE EVENT DATE: 20171214
